FAERS Safety Report 5041302-8 (Version None)
Quarter: 2006Q2

REPORT INFORMATION
  Report Type: 
  Country: None (occurrence: None)
  Receive Date: 20060623
  Receipt Date: 20060613
  Transmission Date: 20061013
  Serious: Yes (Hospitalization)
  Sender: FDA-Public Use
  Company Number: 225425

PATIENT
  Age: 6 Year
  Sex: Female
  Weight: 35.2 kg

DRUGS (11)
  1. NUTROPIN AQ [Suspect]
     Indication: CHROMOSOME ABNORMALITY
     Dosage: 0.95 MG, 7/WEEK,
     Dates: start: 20010720
  2. COUMADIN [Concomitant]
  3. DIGOXIN [Concomitant]
  4. DIOVAN [Concomitant]
  5. LASIX [Concomitant]
  6. ALBUTEROL (ALBUTEROL/ALBUTEROL SULFATE) [Concomitant]
  7. CEPHALEXIN [Concomitant]
  8. MULTIVITAMIN WITH FE AND FL (FLUORIDE NOS, IRON NOS, MULTIVITAMINS NOS [Concomitant]
  9. PULMICORT [Concomitant]
  10. RHINOCORT [Concomitant]
  11. SINGULAIR [Concomitant]

REACTIONS (12)
  - ABDOMINAL PAIN [None]
  - ACTIVATED PARTIAL THROMBOPLASTIN TIME PROLONGED [None]
  - ANAEMIA [None]
  - BLOOD BILIRUBIN INCREASED [None]
  - COUGH [None]
  - CROUP INFECTIOUS [None]
  - HAEMORRHAGE [None]
  - HEPATOMEGALY [None]
  - INTERNATIONAL NORMALISED RATIO INCREASED [None]
  - LYMPHADENITIS [None]
  - PROTHROMBIN TIME PROLONGED [None]
  - WHITE BLOOD CELL COUNT INCREASED [None]
